FAERS Safety Report 23585233 (Version 1)
Quarter: 2024Q1

REPORT INFORMATION
  Report Type: Other
  Country: IN (occurrence: None)
  Receive Date: 20240301
  Receipt Date: 20240301
  Transmission Date: 20240410
  Serious: Yes (Death, Other)
  Sender: FDA-Public Use
  Company Number: IN-ROCHE-3516437

PATIENT

DRUGS (5)
  1. RITUXIMAB [Suspect]
     Active Substance: RITUXIMAB
     Indication: Central nervous system lymphoma
     Dosage: ON DAYS 3, 10, 17, + 24 OF CYCLE 1 AND DAYS 3 + 10 OF CYCLE 2
     Route: 042
  2. METHOTREXATE [Suspect]
     Active Substance: METHOTREXATE
     Indication: Central nervous system lymphoma
     Dosage: 8 G/M2; OVER 4 HOURS ON DAYS 1 + 15 FOR CYCLES 1, 2, + 3; DAY 15 FOR CYCLE 4 AND DAY 1 FOR CYCLE 5.
     Route: 042
  3. TEMOZOLOMIDE [Suspect]
     Active Substance: TEMOZOLOMIDE
     Indication: Central nervous system lymphoma
     Dosage: DAYS 7-11 FOR CYCLES 1-5.
     Route: 048
  4. ETOPOSIDE [Suspect]
     Active Substance: ETOPOSIDE
     Indication: Central nervous system lymphoma
     Dosage: 2 HOURS
     Route: 042
  5. CYTARABINE [Suspect]
     Active Substance: CYTARABINE
     Indication: Central nervous system lymphoma
     Dosage: 2 G/M2
     Route: 042

REACTIONS (9)
  - Febrile neutropenia [Fatal]
  - Haemorrhage intracranial [Fatal]
  - Renal impairment [Unknown]
  - Hypertransaminasaemia [Unknown]
  - Anaemia [Unknown]
  - Neutropenia [Unknown]
  - Thrombocytopenia [Unknown]
  - Infection [Unknown]
  - Hepatic function abnormal [Unknown]
